FAERS Safety Report 25075477 (Version 1)
Quarter: 2025Q1

REPORT INFORMATION
  Report Type: Spontaneous
  Country: US (occurrence: US)
  Receive Date: 20250313
  Receipt Date: 20250313
  Transmission Date: 20250408
  Serious: No
  Sender: MISSION PHARMACAL COMPANY
  Company Number: US-Mission Pharmacal Company-2172845

PATIENT
  Age: 58 Year
  Sex: Female

DRUGS (15)
  1. THIOLA EC [Suspect]
     Active Substance: TIOPRONIN
     Indication: Cystinuria
     Dates: start: 20140911
  2. THIOLA EC [Suspect]
     Active Substance: TIOPRONIN
     Indication: Nephrolithiasis
  3. HYDROCODONE BITARTRATE AND ACETAMINOPHEN [Concomitant]
     Active Substance: ACETAMINOPHEN\HYDROCODONE BITARTRATE
  4. PROVIGIL [Concomitant]
     Active Substance: MODAFINIL
  5. ATROVENT HFA [Concomitant]
     Active Substance: IPRATROPIUM BROMIDE
  6. METOPROLOL TARTRATE [Concomitant]
     Active Substance: METOPROLOL TARTRATE
  7. MOUNJARO [Concomitant]
     Active Substance: TIRZEPATIDE
  8. POTASSIUM CHLORIDE EXTENDED RELEASE [Concomitant]
     Active Substance: POTASSIUM CHLORIDE
  9. IBUPROFEN [Concomitant]
     Active Substance: IBUPROFEN
  10. FLOMAX [Concomitant]
     Active Substance: TAMSULOSIN HYDROCHLORIDE
  11. ZOFRAN [Concomitant]
     Active Substance: ONDANSETRON HYDROCHLORIDE
  12. VITAMIN B [Concomitant]
     Active Substance: VITAMIN B
  13. VITAMIN D [Concomitant]
     Active Substance: VITAMIN D NOS
  14. MORPHINE [Concomitant]
     Active Substance: MORPHINE
  15. LEXAPRO [Concomitant]
     Active Substance: ESCITALOPRAM OXALATE

REACTIONS (1)
  - Drug ineffective [Unknown]
